FAERS Safety Report 5052908-4 (Version None)
Quarter: 2006Q3

REPORT INFORMATION
  Report Type: 
  Country: None (occurrence: None)
  Receive Date: 20060712
  Receipt Date: 20060630
  Transmission Date: 20061208
  Serious: Yes (Other)
  Sender: FDA-Public Use
  Company Number: 2006083734

PATIENT
  Age: 77 Year
  Sex: Female
  Weight: 63.05 kg

DRUGS (1)
  1. NEOSPORIN [Suspect]
     Indication: SKIN LACERATION
     Dosage: QUARTER SIZE TWICE A DAY, TOPICAL
     Route: 061
     Dates: start: 20060601, end: 20060628

REACTIONS (4)
  - BLOOD DISORDER [None]
  - DRUG INEFFECTIVE [None]
  - POISONING [None]
  - SKIN INFECTION [None]
